FAERS Safety Report 7477662-8 (Version None)
Quarter: 2011Q2

REPORT INFORMATION
  Report Type: 
  Country: None (occurrence: None)
  Receive Date: 20110513
  Receipt Date: 20110408
  Transmission Date: 20111010
  Serious: Yes (Other)
  Sender: FDA-Public Use
  Company Number: US-BAYER-201041709NA

PATIENT
  Age: 15 Year
  Sex: Female
  Weight: 58.957 kg

DRUGS (5)
  1. YAZ [Suspect]
     Indication: DYSFUNCTIONAL UTERINE BLEEDING
  2. VALTREX [Concomitant]
     Indication: ORAL HERPES
     Dosage: UNK
     Dates: start: 20081106
  3. YAZ [Suspect]
     Indication: DYSMENORRHOEA
     Route: 048
  4. NAPROXEN [Concomitant]
     Dosage: UNK
     Dates: start: 20080812, end: 20080912
  5. ACYCLOVIR [Concomitant]
     Indication: ORAL HERPES
     Dosage: UNK
     Dates: start: 20081106

REACTIONS (2)
  - GALLBLADDER DISORDER [None]
  - CHOLECYSTITIS CHRONIC [None]
